FAERS Safety Report 5787282-9 (Version None)
Quarter: 2008Q2

REPORT INFORMATION
  Report Type: 
  Country: None (occurrence: None)
  Receive Date: 20080625
  Receipt Date: 20071030
  Transmission Date: 20081010
  Serious: No
  Sender: FDA-Public Use
  Company Number: US-ASTRAZENECA-2007UW20464

PATIENT
  Age: 753 Month
  Sex: Female
  Weight: 69.7 kg

DRUGS (5)
  1. PULMICORT FLEXHALER [Suspect]
     Indication: ASTHMA
     Route: 055
     Dates: start: 20070825, end: 20070827
  2. SYNTHROID [Concomitant]
     Indication: HYPOTHYROIDISM
  3. POTASSIUM CHLORIDE [Concomitant]
  4. ASPIRIN [Concomitant]
     Indication: ATRIAL FIBRILLATION
     Route: 048
  5. VITAMINS (MULTIPLE) [Concomitant]
     Route: 048

REACTIONS (5)
  - ANXIETY [None]
  - BURNING SENSATION [None]
  - COLD SWEAT [None]
  - MALAISE [None]
  - TREMOR [None]
